FAERS Safety Report 7675564-5 (Version None)
Quarter: 2011Q3

REPORT INFORMATION
  Report Type: 
  Country: None (occurrence: None)
  Receive Date: 20110810
  Receipt Date: 20110729
  Transmission Date: 20111222
  Serious: Yes (Death)
  Sender: FDA-Public Use
  Company Number: US-CELGENEUS-163-21880-11053534

PATIENT
  Sex: Female
  Weight: 47.942 kg

DRUGS (23)
  1. FERROUS SULFATE TAB [Concomitant]
     Dosage: 65 MILLIGRAM
     Route: 065
  2. FOSAMAX [Concomitant]
     Dosage: 70 MILLIGRAM
     Route: 065
  3. BENAZEPRIL/HCTZ [Concomitant]
     Dosage: 20/25
     Route: 065
  4. TEMAZEPAM [Concomitant]
     Dosage: 30 MILLIGRAM
     Route: 048
     Dates: start: 20110501
  5. BENADRYL [Concomitant]
     Indication: RASH
     Route: 061
     Dates: start: 20110101
  6. WHOLE BLOOD [Concomitant]
     Route: 041
     Dates: start: 20110101
  7. EVISTA [Concomitant]
     Dosage: 60 MILLIGRAM
     Route: 065
  8. LORAZEPAM [Concomitant]
     Dosage: .5 MILLIGRAM
     Route: 065
  9. TRAMADOL HCL [Concomitant]
     Route: 065
  10. AMLODIPINE [Concomitant]
     Dosage: 5 MILLIGRAM
     Route: 065
     Dates: end: 20110101
  11. NITROFURANTOIN [Concomitant]
     Dosage: 100 MILLIGRAM
     Route: 048
     Dates: start: 20110501
  12. LEVOTHYROXINE SODIUM [Concomitant]
     Dosage: 125 MICROGRAM
     Route: 065
  13. LORAZEPAM [Concomitant]
     Dosage: 1 MILLIGRAM
     Route: 041
     Dates: start: 20110501
  14. POTASSIUM [Concomitant]
     Dosage: 10 MILLIEQUIVALENTS
     Route: 065
  15. REVLIMID [Suspect]
     Dosage: 10 MILLIGRAM
     Route: 048
     Dates: start: 20110310, end: 20110501
  16. TEMAZEPAM [Concomitant]
     Dosage: 15 MILLIGRAM
     Route: 065
  17. CALCIUM CARBONATE [Concomitant]
     Dosage: 400 MILLIGRAM
     Route: 065
  18. VESICARE [Concomitant]
     Dosage: 5 MILLIGRAM
     Route: 065
  19. PRAVASTATIN [Concomitant]
     Dosage: 40 MILLIGRAM
     Route: 065
  20. ACETAMINOPHEN [Concomitant]
     Indication: PAIN
     Route: 054
     Dates: start: 20110501
  21. ASPIRIN [Concomitant]
     Dosage: 81 MILLIGRAM
     Route: 065
  22. VITAMIN-MINERAL COMPOUND TAB [Concomitant]
     Route: 065
  23. VITAMIN D [Concomitant]
     Dosage: 1000 MILLIGRAM
     Route: 065

REACTIONS (2)
  - PNEUMONIA [None]
  - NEUTROPENIA [None]
